FAERS Safety Report 15347544 (Version 1)
Quarter: 2018Q3

REPORT INFORMATION
  Report Type: Spontaneous
  Country: AU (occurrence: AU)
  Receive Date: 20180904
  Receipt Date: 20180904
  Transmission Date: 20181010
  Serious: Yes (Death)
  Sender: FDA-Public Use
  Company Number: AU-009507513-1808AUS013115

PATIENT
  Age: 89 Year
  Sex: Male
  Weight: 66 kg

DRUGS (13)
  1. ALLOPURINOL. [Concomitant]
     Active Substance: ALLOPURINOL
  2. AZOPT [Concomitant]
     Active Substance: BRINZOLAMIDE
     Dosage: EYE DROPS
  3. OROXINE [Concomitant]
     Active Substance: LEVOTHYROXINE SODIUM
  4. AMIODARONE [Concomitant]
     Active Substance: AMIODARONE
  5. CHOLECALCIFEROL [Concomitant]
     Active Substance: CHOLECALCIFEROL
  6. ATORVASTATIN [Concomitant]
     Active Substance: ATORVASTATIN
  7. ESOMEPRAZOLE [Concomitant]
     Active Substance: ESOMEPRAZOLE
  8. PEMBROLIZUMAB. [Suspect]
     Active Substance: PEMBROLIZUMAB
     Dosage: 200 MG, CYCLICAL
     Route: 042
     Dates: start: 20170926, end: 20171108
  9. ASPIRIN. [Concomitant]
     Active Substance: ASPIRIN
  10. CALTRATE [Concomitant]
     Active Substance: CALCIUM CARBONATE
  11. FUROSEMIDE. [Concomitant]
     Active Substance: FUROSEMIDE
  12. AMLODIPINE [Concomitant]
     Active Substance: AMLODIPINE BESYLATE
  13. XALATAN [Concomitant]
     Active Substance: LATANOPROST

REACTIONS (2)
  - Colitis [Fatal]
  - Hyponatraemia [Fatal]

NARRATIVE: CASE EVENT DATE: 201711
